FAERS Safety Report 19449618 (Version 1)
Quarter: 2021Q2

REPORT INFORMATION
  Report Type: Spontaneous
  Country: US (occurrence: US)
  Receive Date: 20210622
  Receipt Date: 20210622
  Transmission Date: 20210717
  Serious: No
  Sender: FDA-Public Use
  Company Number: US-PFIZER INC-2021601589

PATIENT
  Age: 11 Year
  Sex: Female
  Weight: 62 kg

DRUGS (1)
  1. GENOTROPIN [Suspect]
     Active Substance: SOMATROPIN
     Indication: TURNER^S SYNDROME
     Dosage: 2.0, DAILY AT NIGHT
     Dates: start: 202007

REACTIONS (4)
  - Device leakage [Unknown]
  - Wrong technique in device usage process [Unknown]
  - Device issue [Unknown]
  - Poor quality device used [Unknown]

NARRATIVE: CASE EVENT DATE: 202105
